FAERS Safety Report 5215574-0 (Version None)
Quarter: 2007Q1

REPORT INFORMATION
  Report Type: 
  Country: None (occurrence: None)
  Receive Date: 20070117
  Receipt Date: 20070108
  Transmission Date: 20070707
  Serious: Yes (Hospitalization)
  Sender: FDA-Public Use
  Company Number: 2007AL000114

PATIENT
  Age: 34 Year
  Sex: Female

DRUGS (4)
  1. DICLOFENAC  SODIUM EXTENDED-RELEASE TABLETS, 100 MG (PUREPAC)( DICLOFE [Suspect]
     Indication: ANALGESIC THERAPY
     Dosage: PO
     Route: 048
  2. AUGMENTIN '125' [Concomitant]
  3. ENOXAPARIN SODIUM [Concomitant]
  4. GRANISETRON [Concomitant]

REACTIONS (4)
  - ACUTE GENERALISED EXANTHEMATOUS PUSTULOSIS [None]
  - DRUG HYPERSENSITIVITY [None]
  - SKIN OEDEMA [None]
  - TACHYCARDIA [None]
